FAERS Safety Report 21759613 (Version 5)
Quarter: 2023Q1

REPORT INFORMATION
  Report Type: Spontaneous
  Country: US (occurrence: US)
  Receive Date: 20221221
  Receipt Date: 20230217
  Transmission Date: 20230418
  Serious: No
  Sender: FDA-Public Use
  Company Number: US-BRISTOL-MYERS SQUIBB COMPANY-2022-156730

PATIENT
  Age: 89 Year
  Sex: Female

DRUGS (1)
  1. POMALYST [Suspect]
     Active Substance: POMALIDOMIDE
     Indication: Plasma cell myeloma
     Dosage: FREQUENCY: FOR 28 DAYS
     Route: 048
     Dates: start: 20220916

REACTIONS (4)
  - Extra dose administered [Unknown]
  - Off label use [Unknown]
  - Product dose omission issue [Unknown]
  - Peripheral swelling [Unknown]
